FAERS Safety Report 7442613-9 (Version None)
Quarter: 2011Q2

REPORT INFORMATION
  Report Type: 
  Country: None (occurrence: None)
  Receive Date: 20110425
  Receipt Date: 20110425
  Transmission Date: 20111010
  Serious: Yes (Hospitalization)
  Sender: FDA-Public Use
  Company Number: None

PATIENT
  Sex: Male
  Weight: 75.7507 kg

DRUGS (4)
  1. VOTRIENT [Suspect]
     Indication: LUNG DISORDER
     Dosage: 600 MG QD PO
     Route: 048
     Dates: start: 20110315, end: 20110417
  2. CARBOPLATIN [Concomitant]
  3. SALVAGE DOCETAXEL [Concomitant]
  4. GEMCITABINE [Concomitant]

REACTIONS (3)
  - EPISTAXIS [None]
  - HAEMATOCHEZIA [None]
  - DIVERTICULUM INTESTINAL HAEMORRHAGIC [None]
